FAERS Safety Report 16933108 (Version 8)
Quarter: 2020Q4

REPORT INFORMATION
  Report Type: Report from Study
  Country: GB (occurrence: GB)
  Receive Date: 20191018
  Receipt Date: 20201005
  Transmission Date: 20210113
  Serious: Yes (Hospitalization)
  Sender: FDA-Public Use
  Company Number: GB-ROCHE-2436941

PATIENT
  Age: 72 Year
  Sex: Male
  Weight: 63.8 kg

DRUGS (28)
  1. ALLOPURINOL. [Concomitant]
     Active Substance: ALLOPURINOL
     Dates: start: 20190926
  2. POLATUZUMAB VEDOTIN. [Suspect]
     Active Substance: POLATUZUMAB VEDOTIN
     Indication: DIFFUSE LARGE B-CELL LYMPHOMA REFRACTORY
     Dosage: IV INFUSION AT DOSE 1.8 MG/KG ON DAY 1 OF EACH 28-DAY CYCLE FOR UP TO 6 MONTHS DURING INDUCTION TREA
     Route: 042
     Dates: start: 20190926
  3. LENALIDOMIDE [Suspect]
     Active Substance: LENALIDOMIDE
     Indication: DIFFUSE LARGE B-CELL LYMPHOMA REFRACTORY
     Dosage: DATE OF MOST RECENT DOSE OF LENALIDOMIDE (20 MG) PRIOR TO SAE ONSET: 06/OCT/2019.?DATE OF MOST RECEN
     Route: 048
     Dates: start: 20190926
  4. ONDANSETRON [Concomitant]
     Active Substance: ONDANSETRON
     Dates: start: 201910
  5. MORPHINE SULFATE. [Concomitant]
     Active Substance: MORPHINE SULFATE
     Indication: COVID-19 PNEUMONIA
     Dates: start: 20200712, end: 20200713
  6. OMEPRAZOLE. [Concomitant]
     Active Substance: OMEPRAZOLE
     Indication: DYSPEPSIA
     Dates: start: 20190314, end: 20191012
  7. DIGOXIN. [Concomitant]
     Active Substance: DIGOXIN
     Dates: start: 201910
  8. GENTAMICIN. [Concomitant]
     Active Substance: GENTAMICIN
     Indication: INFECTION PROPHYLAXIS
     Dates: start: 20191129, end: 20191129
  9. COTRIMOXAZOLE [Concomitant]
     Active Substance: SULFAMETHOXAZOLE\TRIMETHOPRIM
     Indication: INFECTION PROPHYLAXIS
     Dates: start: 20190926, end: 20191012
  10. FUROSEMIDE. [Concomitant]
     Active Substance: FUROSEMIDE
     Indication: ATRIAL FLUTTER
     Dates: start: 20190521
  11. GLICLAZIDE [Concomitant]
     Active Substance: GLICLAZIDE
     Indication: STEROID DIABETES
     Dates: start: 20190612
  12. ACICLOVIR [Concomitant]
     Active Substance: ACYCLOVIR
     Dates: start: 20190926
  13. DEGARELIX [Concomitant]
     Active Substance: DEGARELIX
     Indication: PROSTATE CANCER
     Dates: start: 20191206
  14. CLARITHROMYCIN. [Concomitant]
     Active Substance: CLARITHROMYCIN
     Indication: COVID-19 PNEUMONIA
     Dates: start: 20200712, end: 20200714
  15. PARACETAMOL [Concomitant]
     Active Substance: ACETAMINOPHEN
     Indication: COVID-19 PNEUMONIA
     Dates: start: 20200712, end: 20200714
  16. COTRIMOXAZOLE [Concomitant]
     Active Substance: SULFAMETHOXAZOLE\TRIMETHOPRIM
     Dates: start: 20191024
  17. EDOXABAN [Concomitant]
     Active Substance: EDOXABAN TOSYLATE
     Indication: ATRIAL FLUTTER
     Dates: start: 20181121
  18. VERAPAMIL [Concomitant]
     Active Substance: VERAPAMIL HYDROCHLORIDE
     Indication: ATRIAL FLUTTER
     Dates: start: 20190329
  19. BENZYLPENICILLIN SODIUM [Concomitant]
     Active Substance: PENICILLIN G SODIUM
     Indication: COVID-19 PNEUMONIA
     Dates: start: 20200712, end: 20200713
  20. CEFTRIAXONE. [Concomitant]
     Active Substance: CEFTRIAXONE
     Indication: COVID-19 PNEUMONIA
     Dates: start: 20200713, end: 20200713
  21. RITUXIMAB. [Suspect]
     Active Substance: RITUXIMAB
     Indication: DIFFUSE LARGE B-CELL LYMPHOMA REFRACTORY
     Dosage: DATE OF MOST RECENT DOSE OF RITUXIMAB (670 MG) PRIOR TO AE ONSET WAS ON 26/SEP/2019.
     Route: 042
     Dates: start: 20190926
  22. DIGOXIN. [Concomitant]
     Active Substance: DIGOXIN
     Indication: ATRIAL FLUTTER
     Dates: start: 20190329, end: 201908
  23. RANITIDINE. [Concomitant]
     Active Substance: RANITIDINE
     Indication: DYSPEPSIA
     Dates: start: 201910, end: 201910
  24. OXYCODONE HYDROCHLORIDE. [Concomitant]
     Active Substance: OXYCODONE HYDROCHLORIDE
     Indication: COVID-19 PNEUMONIA
     Dates: start: 20200714, end: 20200715
  25. PREDNISOLONE. [Concomitant]
     Active Substance: PREDNISOLONE
     Indication: CARPAL TUNNEL SYNDROME
     Dates: start: 20190802, end: 20190925
  26. SALBUTAMOL [Concomitant]
     Active Substance: ALBUTEROL
     Indication: DYSPNOEA
     Dates: start: 20191024
  27. FILGRASTIM [Concomitant]
     Active Substance: FILGRASTIM
     Indication: NEUTROPENIA
     Dates: start: 20191119, end: 20191122
  28. RED BLOOD CELLS [Concomitant]
     Active Substance: HUMAN RED BLOOD CELL
     Indication: ANAEMIA
     Dates: start: 20191120, end: 20191120

REACTIONS (2)
  - Pulmonary embolism [Not Recovered/Not Resolved]
  - Acute kidney injury [Recovered/Resolved]

NARRATIVE: CASE EVENT DATE: 20191006
